FAERS Safety Report 4488073-1 (Version None)
Quarter: 2004Q4

REPORT INFORMATION
  Report Type: 
  Country: None (occurrence: None)
  Receive Date: 20041028
  Receipt Date: 20041005
  Transmission Date: 20050328
  Serious: Yes (Hospitalization)
  Sender: FDA-Public Use
  Company Number: JP-GLAXOSMITHKLINE-B0347543A

PATIENT
  Age: 85 Year
  Sex: Female
  Weight: 34 kg

DRUGS (13)
  1. ZOVIRAX [Suspect]
     Indication: HERPES ZOSTER
     Dosage: 200MG TWICE PER DAY
     Route: 048
     Dates: start: 20030315, end: 20030321
  2. FRUSEMIDE [Concomitant]
     Indication: RENAL FAILURE CHRONIC
     Dosage: 40MG PER DAY
     Route: 048
  3. FAMOTIDINE [Concomitant]
     Indication: GASTRITIS
     Dosage: 10MG PER DAY
     Route: 048
  4. TRANDOLAPRIL [Concomitant]
     Indication: HYPERTENSION
     Dosage: 2MG PER DAY
     Route: 048
  5. NIFEDIPINE [Concomitant]
     Indication: HYPERTENSION
     Dosage: 60MG PER DAY
     Route: 048
  6. CALCIUM CARBONATE [Concomitant]
     Indication: HYPERPHOSPHATAEMIA
     Dosage: 2G PER DAY
     Route: 048
  7. MIYARI BACTERIA [Concomitant]
     Indication: COLITIS
     Dosage: 120MG PER DAY
     Route: 048
  8. BERIZYM [Concomitant]
     Indication: GASTRITIS
     Dosage: 3G PER DAY
     Route: 048
  9. NEUROVITAN [Concomitant]
     Indication: HYPOVITAMINOSIS
     Route: 048
  10. LIGNOCAINE HYDROCHLORIDE [Concomitant]
     Indication: HAEMODIALYSIS
     Route: 062
  11. INNOLET 30R [Concomitant]
     Indication: DIABETES MELLITUS
     Dosage: 6IU PER DAY
     Route: 058
  12. EPOETIN ALFA [Concomitant]
     Indication: NEPHROGENIC ANAEMIA
  13. MECOBALAMIN [Concomitant]
     Indication: NERVE INJURY

REACTIONS (2)
  - DRUG TOXICITY [None]
  - SPEECH DISORDER [None]
